FAERS Safety Report 11360555 (Version 1)
Quarter: 2015Q3

REPORT INFORMATION
  Report Type: Report from Study
  Country: US (occurrence: US)
  Receive Date: 20150810
  Receipt Date: 20150810
  Transmission Date: 20151125
  Serious: No
  Sender: FDA-Public Use
  Company Number: PHEH2014US017273

PATIENT
  Age: 25 Year
  Sex: Female

DRUGS (4)
  1. EXTAVIA [Suspect]
     Active Substance: INTERFERON BETA-1B
     Dosage: 0.75 ML (0.1875MG), QOD (FOR WEEK 5-6))
     Route: 058
  2. EXTAVIA [Suspect]
     Active Substance: INTERFERON BETA-1B
     Dosage: 1 ML (0.25MG), QOD (FOR WEEK 7+)
     Route: 058
  3. EXTAVIA [Suspect]
     Active Substance: INTERFERON BETA-1B
     Indication: MULTIPLE SCLEROSIS
     Dosage: 0.25 ML (0.0625 MG), QOD (FOR WEEKS 1-2)
     Route: 058
     Dates: start: 20140820
  4. EXTAVIA [Suspect]
     Active Substance: INTERFERON BETA-1B
     Dosage: 0.5 ML, (0.125 MG) QOD ( FOR WEEKS 3-4)
     Route: 058

REACTIONS (11)
  - Somnolence [Not Recovered/Not Resolved]
  - Fatigue [Not Recovered/Not Resolved]
  - Palpitations [Not Recovered/Not Resolved]
  - Feeling abnormal [Not Recovered/Not Resolved]
  - Insomnia [Not Recovered/Not Resolved]
  - Throat irritation [Recovering/Resolving]
  - Diarrhoea [Recovering/Resolving]
  - Injection site pain [Not Recovered/Not Resolved]
  - Aphonia [Recovering/Resolving]
  - Negative thoughts [Recovering/Resolving]
  - Pain [Not Recovered/Not Resolved]

NARRATIVE: CASE EVENT DATE: 20140821
